FAERS Safety Report 5952841-7 (Version None)
Quarter: 2008Q4

REPORT INFORMATION
  Report Type: 
  Country: None (occurrence: None)
  Receive Date: 20081114
  Receipt Date: 20081105
  Transmission Date: 20090506
  Serious: Yes (Hospitalization)
  Sender: FDA-Public Use
  Company Number: JP-JNJFOC-20080406293

PATIENT
  Sex: Female
  Weight: 41 kg

DRUGS (9)
  1. REMICADE [Suspect]
     Route: 042
  2. REMICADE [Suspect]
     Indication: RHEUMATOID ARTHRITIS
     Route: 042
  3. PREDNISOLONE [Suspect]
     Indication: RHEUMATOID ARTHRITIS
     Route: 048
  4. RHEUMATREX [Suspect]
     Indication: RHEUMATOID ARTHRITIS
     Route: 048
  5. LOXONIN [Concomitant]
     Indication: RHEUMATOID ARTHRITIS
     Route: 048
  6. PYDOXAL [Concomitant]
     Indication: PROPHYLAXIS
     Route: 048
  7. ISCOTIN [Concomitant]
     Indication: ANTIBIOTIC PROPHYLAXIS
     Route: 048
  8. ONEALFA [Concomitant]
     Indication: OSTEOPOROSIS
     Dosage: 0.5 RG
     Route: 048
  9. GASTER D [Concomitant]
     Indication: GASTRITIS
     Route: 048

REACTIONS (1)
  - MYCOBACTERIUM AVIUM COMPLEX INFECTION [None]
